FAERS Safety Report 9670484 (Version 1)
Quarter: 2013Q4

REPORT INFORMATION
  Report Type: Spontaneous
  Country: JP (occurrence: JP)
  Receive Date: 20131106
  Receipt Date: 20131106
  Transmission Date: 20140711
  Serious: Yes (Life-Threatening)
  Sender: FDA-Public Use
  Company Number: JP-AMGEN-JPNSP2013077771

PATIENT
  Age: 86 Year
  Sex: Female

DRUGS (7)
  1. PRALIA [Suspect]
     Indication: OSTEOPOROSIS
     Dosage: 60 MG, UNK
     Route: 058
     Dates: start: 20130726
  2. VESICARE [Concomitant]
     Dosage: UNKNOWN
     Route: 065
  3. LYRICA [Concomitant]
     Dosage: UNKNOWN
     Route: 065
  4. PLETAAL [Concomitant]
     Dosage: UNKNOWN
     Route: 065
  5. PANALDINE [Concomitant]
     Dosage: UNKNOWN
     Route: 065
  6. DEPAS [Concomitant]
     Dosage: UNKNOWN
     Route: 065
  7. DIOVAN [Concomitant]
     Dosage: UNKNOWN
     Route: 065

REACTIONS (1)
  - Cerebral infarction [Not Recovered/Not Resolved]
